FAERS Safety Report 20754878 (Version 1)
Quarter: 2022Q2

REPORT INFORMATION
  Report Type: Spontaneous
  Country: US (occurrence: US)
  Receive Date: 20220427
  Receipt Date: 20220427
  Transmission Date: 20220721
  Serious: Yes (Hospitalization)
  Sender: FDA-Public Use
  Company Number: US-CIPLA LTD.-2022US02570

PATIENT

DRUGS (1)
  1. WARFARIN [Suspect]
     Active Substance: WARFARIN
     Indication: Deep vein thrombosis
     Dosage: UNK
     Route: 065

REACTIONS (5)
  - Eye pain [Unknown]
  - Clot retraction abnormal [Unknown]
  - Headache [Recovering/Resolving]
  - Swelling face [Recovered/Resolved]
  - Anticoagulation drug level above therapeutic [Unknown]
